FAERS Safety Report 12343584 (Version 2)
Quarter: 2016Q2

REPORT INFORMATION
  Report Type: Spontaneous
  Country: SE (occurrence: SE)
  Receive Date: 20160506
  Receipt Date: 20160510
  Transmission Date: 20160815
  Serious: Yes (Congenital Anomaly)
  Sender: FDA-Public Use
  Company Number: SE-ASTRAZENECA-2016SE46832

PATIENT
  Sex: Male

DRUGS (2)
  1. LAMOTRIGINE. [Suspect]
     Active Substance: LAMOTRIGINE
     Indication: BIPOLAR DISORDER
     Route: 064
     Dates: start: 2011, end: 2014
  2. SEROQUEL [Suspect]
     Active Substance: QUETIAPINE FUMARATE
     Indication: BIPOLAR DISORDER
     Route: 064
     Dates: start: 2011, end: 2014

REACTIONS (1)
  - Ankyloglossia congenital [Recovered/Resolved]

NARRATIVE: CASE EVENT DATE: 201311
